FAERS Safety Report 6024810-2 (Version None)
Quarter: 2008Q4

REPORT INFORMATION
  Report Type: 
  Country: None (occurrence: None)
  Receive Date: 20081231
  Receipt Date: 20081226
  Transmission Date: 20090506
  Serious: Yes (Hospitalization, Other)
  Sender: FDA-Public Use
  Company Number: JP-BRISTOL-MYERS SQUIBB COMPANY-14456016

PATIENT
  Age: 73 Year
  Sex: Male

DRUGS (12)
  1. PARAPLATIN [Suspect]
     Indication: LUNG NEOPLASM MALIGNANT
     Dosage: 450MG,1/1 MONTH. IV DRIP, 04JUL07-12MAY08,8DAYS.600MG,01OCT08-UNK.4 DAYS
     Route: 041
     Dates: start: 20081001, end: 20081001
  2. VEPESID [Suspect]
     Indication: LUNG NEOPLASM MALIGNANT
     Dosage: 4 DAYS
     Route: 041
     Dates: start: 20081001, end: 20081001
  3. AMRUBICIN HCL [Suspect]
     Indication: SMALL CELL LUNG CANCER STAGE UNSPECIFIED
     Route: 041
     Dates: start: 20070704, end: 20080512
  4. ARTIST [Concomitant]
     Route: 048
  5. BLOPRESS [Concomitant]
     Route: 048
  6. OMEPRAL [Concomitant]
     Route: 048
  7. AVISHOT [Concomitant]
     Route: 048
     Dates: start: 20070808
  8. CODEINE PHOSPHATE [Concomitant]
     Route: 048
     Dates: start: 20070615
  9. MUCODYNE [Concomitant]
     Route: 048
  10. MUCOSOLVAN [Concomitant]
     Route: 048
     Dates: start: 20080410
  11. MAGLAX [Concomitant]
     Route: 048
     Dates: start: 20070615
  12. MEDICON [Concomitant]
     Route: 048
     Dates: start: 20080220

REACTIONS (2)
  - BONE MARROW FAILURE [None]
  - PNEUMOTHORAX [None]
